FAERS Safety Report 24013368 (Version 3)
Quarter: 2025Q1

REPORT INFORMATION
  Report Type: Spontaneous
  Country: US (occurrence: US)
  Receive Date: 20240626
  Receipt Date: 20250305
  Transmission Date: 20250409
  Serious: Yes (Hospitalization)
  Sender: SANOFI AVENTIS
  Company Number: US-SA-2024SA184512

PATIENT
  Age: 67 Year
  Sex: Female
  Weight: 86.59 kg

DRUGS (7)
  1. REZUROCK [Suspect]
     Active Substance: BELUMOSUDIL
     Indication: Graft versus host disease
     Dosage: 200 MG, QD
     Route: 048
  2. TACROLIMUS [Concomitant]
     Active Substance: TACROLIMUS
  3. VALACYCLOVIR [Concomitant]
     Active Substance: VALACYCLOVIR HYDROCHLORIDE
  4. DOXYCYCLINE [Concomitant]
     Active Substance: DOXYCYCLINE
  5. VITAMIN D NOS [Concomitant]
     Active Substance: CHOLECALCIFEROL\ERGOCALCIFEROL
  6. PREDNISOLONE [Concomitant]
     Active Substance: PREDNISOLONE
  7. ELIQUIS [Concomitant]
     Active Substance: APIXABAN

REACTIONS (3)
  - Renal disorder [Not Recovered/Not Resolved]
  - Urinary tract infection [Recovering/Resolving]
  - Fatigue [Recovering/Resolving]

NARRATIVE: CASE EVENT DATE: 20240601
